FAERS Safety Report 8239497-8 (Version None)
Quarter: 2012Q1

REPORT INFORMATION
  Report Type: 
  Country: None (occurrence: None)
  Receive Date: 20120328
  Receipt Date: 20120322
  Transmission Date: 20120608
  Serious: No
  Sender: FDA-Public Use
  Company Number: US-PFIZER INC-2012075361

PATIENT
  Sex: Female

DRUGS (3)
  1. LATANOPROST [Suspect]
     Indication: OPEN ANGLE GLAUCOMA
     Dosage: ONE GTT IN BOTH EYES ONCE A DAY
     Route: 047
     Dates: start: 20120101
  2. XALATAN [Suspect]
     Indication: OPEN ANGLE GLAUCOMA
     Dosage: ONE GTT IN BOTH EYES ONCE A DAY
     Route: 047
     Dates: start: 20110101, end: 20120101
  3. COMBIGAN [Concomitant]
     Dosage: UNK

REACTIONS (1)
  - DRY MOUTH [None]
